FAERS Safety Report 7770886-1 (Version None)
Quarter: 2011Q3

REPORT INFORMATION
  Report Type: 
  Country: None (occurrence: None)
  Receive Date: 20110922
  Receipt Date: 20110330
  Transmission Date: 20111222
  Serious: Yes (Hospitalization, Other)
  Sender: FDA-Public Use
  Company Number: US-ASTRAZENECA-2007UW21429

PATIENT
  Age: 50 Year
  Sex: Female
  Weight: 86.2 kg

DRUGS (21)
  1. TRAZODONE HYDROCHLORIDE [Concomitant]
     Dosage: 50 MG TO 100 MG
     Dates: start: 20031009
  2. IBUPROFEN [Concomitant]
     Dates: start: 20010219
  3. LEVAQUIN [Concomitant]
     Dates: start: 20030314
  4. TRAZODONE HYDROCHLORIDE [Concomitant]
     Dates: start: 20060908
  5. AMBIEN [Concomitant]
     Dosage: 1-10 MG AT NIGHT, AS REQUIRED
  6. PAXIL [Concomitant]
  7. SULFAMETHOXAZOLE AND TRIMETHOPRIM DOUBLE STRENGTH [Concomitant]
     Dates: start: 20011127
  8. GUIATUSS AC [Concomitant]
     Dates: start: 20011127
  9. BECONASE [Concomitant]
     Dates: start: 20020218
  10. SEROQUEL [Suspect]
     Route: 048
     Dates: start: 20050501, end: 20060901
  11. TRAMADOL HCL [Concomitant]
     Dates: start: 20031030
  12. NAPROXIN [Concomitant]
     Dates: start: 20030617
  13. TRAZODONE HYDROCHLORIDE [Concomitant]
     Dosage: 10MG- 100MG AT NIGHT
  14. HYDROCODONE BITARTRATE AND ACETAMINOPHEN [Concomitant]
     Dosage: 5/500
     Dates: start: 20010219
  15. SEROQUEL [Suspect]
     Indication: DEPRESSION
     Route: 048
     Dates: start: 20031106
  16. PAXIL [Concomitant]
     Indication: DEPRESSION
     Dosage: 10 MG TO 40 MG,
     Dates: start: 20011119
  17. SEROQUEL [Suspect]
     Dosage: STRENGTH-  20 MG, 100MG, 200MG  DOSE-  60MG-600MG DAILY
     Route: 048
     Dates: start: 20040108
  18. SEROQUEL [Suspect]
     Dosage: 100 MG TO 400 MG
     Route: 048
     Dates: start: 20040120
  19. PAXIL [Concomitant]
     Dosage: STRENGTH-  40MG  DOSE-  80MG-120MG DAILY
  20. LORAZEPAM [Concomitant]
     Dosage: 0.5 MG TO 1 MG
     Dates: start: 20030811
  21. ALBUTEROL [Concomitant]
     Dates: start: 20011127

REACTIONS (6)
  - DIABETES MELLITUS INADEQUATE CONTROL [None]
  - OBESITY [None]
  - DIABETIC KETOACIDOSIS [None]
  - TYPE 2 DIABETES MELLITUS [None]
  - DIABETIC COMA [None]
  - LIGAMENT RUPTURE [None]
